FAERS Safety Report 7344419-8 (Version None)
Quarter: 2011Q1

REPORT INFORMATION
  Report Type: 
  Country: None (occurrence: None)
  Receive Date: 20110310
  Receipt Date: 20110308
  Transmission Date: 20110831
  Serious: Yes (Other)
  Sender: FDA-Public Use
  Company Number: GXKR2011DE00883

PATIENT
  Sex: Male

DRUGS (1)
  1. AZITHROMYCIN [Suspect]
     Indication: TONSILLITIS
     Dosage: 500 MG, ONCE/SINGLE
     Route: 048
     Dates: start: 20110208

REACTIONS (2)
  - HALLUCINATION [None]
  - ANXIETY [None]
